FAERS Safety Report 16962860 (Version 1)
Quarter: 2019Q4

REPORT INFORMATION
  Report Type: Other
  Country: CA (occurrence: CA)
  Receive Date: 20191025
  Receipt Date: 20191025
  Transmission Date: 20200122
  Serious: Yes (Other)
  Sender: FDA-Public Use
  Company Number: CA-PFIZER INC-2019458092

PATIENT
  Sex: Female

DRUGS (2)
  1. ALENDRONATE [Suspect]
     Active Substance: ALENDRONATE SODIUM
     Dosage: UNK
  2. PAMIDRONATE DISODIUM. [Suspect]
     Active Substance: PAMIDRONATE DISODIUM
     Dosage: UNK
     Route: 042

REACTIONS (3)
  - Bone formation decreased [Unknown]
  - Mineral metabolism disorder [Unknown]
  - Atypical femur fracture [Unknown]
